FAERS Safety Report 15370257 (Version 2)
Quarter: 2018Q3

REPORT INFORMATION
  Report Type: Spontaneous
  Country: DE (occurrence: DE)
  Receive Date: 20180911
  Receipt Date: 20180927
  Transmission Date: 20181010
  Serious: Yes (Congenital Anomaly)
  Sender: FDA-Public Use
  Company Number: DE-COVIS PHARMA B.V.-2018COV03751

PATIENT
  Sex: Male

DRUGS (6)
  1. OMEPRAZOLE MAGNESIUM. [Suspect]
     Active Substance: OMEPRAZOLE MAGNESIUM
     Dosage: 0 TO 4 GESTATIONAL WEEKS
     Route: 064
  2. DICLOFENAC [Suspect]
     Active Substance: DICLOFENAC
     Dosage: 0 TO 27 GESTATIONAL WEEKS
     Route: 064
  3. LEVOTHYROXINE. [Suspect]
     Active Substance: LEVOTHYROXINE
     Dosage: 0 TO 27 GESTATIONAL WEEKS
     Route: 064
  4. IBUPROFEN. [Suspect]
     Active Substance: IBUPROFEN
     Dosage: 0 TO 27 GESTATIONAL WEEKS
     Route: 064
  5. LYNESTRENOL [Suspect]
     Active Substance: LYNESTRENOL
     Dosage: 0 TO 4 GESTATIONAL WEEKS
     Route: 064
  6. PARACETAMOL [Suspect]
     Active Substance: ACETAMINOPHEN
     Dosage: 0 TO 4 GESTATIONAL WEEKS
     Route: 064

REACTIONS (7)
  - Splenomegaly [Unknown]
  - Pyloric stenosis [Unknown]
  - Pupils unequal [Unknown]
  - Atrial septal defect [Unknown]
  - Foetal exposure during pregnancy [Unknown]
  - Cerebral atrophy congenital [Unknown]
  - Macrocephaly [Unknown]
